FAERS Safety Report 12374493 (Version 1)
Quarter: 2016Q2

REPORT INFORMATION
  Report Type: Spontaneous
  Country: US (occurrence: US)
  Receive Date: 20160517
  Receipt Date: 20160517
  Transmission Date: 20160815
  Serious: No
  Sender: FDA-Public Use
  Company Number: US-TORRENT-00001181

PATIENT
  Age: 59 Year
  Sex: Female

DRUGS (1)
  1. ARIPIPRAZOLE TABLET [Suspect]
     Active Substance: ARIPIPRAZOLE
     Indication: ANXIETY
     Route: 048

REACTIONS (2)
  - Incorrect dose administered [Unknown]
  - Off label use [Unknown]
